FAERS Safety Report 8886730 (Version 2)
Quarter: 2012Q4

REPORT INFORMATION
  Report Type: 
  Country: US (occurrence: US)
  Receive Date: 20121105
  Receipt Date: 20121123
  Transmission Date: 20130627
  Serious: Yes (Hospitalization)
  Sender: FDA-Public Use
  Company Number: US-PFIZER INC-2012272849

PATIENT
  Age: 72 Year
  Sex: Female

DRUGS (2)
  1. VFEND [Suspect]
     Indication: ASPERGILLOSIS
     Dosage: 200 mg, 2x/day
     Dates: start: 20120501, end: 201207
  2. VFEND [Suspect]
     Indication: PNEUMONIA FUNGAL

REACTIONS (1)
  - Drug effect incomplete [Unknown]
